FAERS Safety Report 4700998-8 (Version None)
Quarter: 2005Q2

REPORT INFORMATION
  Report Type: 
  Country: None (occurrence: None)
  Receive Date: 20050628
  Receipt Date: 20050616
  Transmission Date: 20051028
  Serious: Yes (Hospitalization)
  Sender: FDA-Public Use
  Company Number: US-BRISTOL-MYERS SQUIBB COMPANY-13005798

PATIENT
  Sex: Female

DRUGS (2)
  1. AVALIDE [Suspect]
     Dosage: DOSAGE FORM = 150 MG / 12.5 MG
     Dates: start: 20050614
  2. DIOVAN [Concomitant]

REACTIONS (1)
  - ANAPHYLACTIC SHOCK [None]
